FAERS Safety Report 7115657-4 (Version None)
Quarter: 2010Q4

REPORT INFORMATION
  Report Type: 
  Country: None (occurrence: None)
  Receive Date: 20101122
  Receipt Date: 20101109
  Transmission Date: 20110411
  Serious: Yes (Hospitalization)
  Sender: FDA-Public Use
  Company Number: US-ELI_LILLY_AND_COMPANY-US201011001115

PATIENT
  Age: 71 Year
  Sex: Male

DRUGS (2)
  1. PRASUGREL HYDROCHLORIDE [Suspect]
     Indication: ACUTE CORONARY SYNDROME
     Dosage: 10 MG, ONCE
     Route: 065
     Dates: start: 20100616, end: 20100616
  2. ASPIRIN [Concomitant]
     Indication: PRODUCT USED FOR UNKNOWN INDICATION
     Dosage: 325 MG, UNKNOWN
     Route: 065
     Dates: start: 20100616

REACTIONS (1)
  - ANGINA PECTORIS [None]
